FAERS Safety Report 24050521 (Version 2)
Quarter: 2025Q2

REPORT INFORMATION
  Report Type: Spontaneous
  Country: US (occurrence: US)
  Receive Date: 20240704
  Receipt Date: 20250609
  Transmission Date: 20250717
  Serious: No
  Sender: MERCK SHARP & DOHME LLC
  Company Number: None

PATIENT
  Sex: Female

DRUGS (6)
  1. SOTATERCEPT [Suspect]
     Active Substance: SOTATERCEPT
     Route: 058
     Dates: start: 2024, end: 2024
  2. SOTATERCEPT [Suspect]
     Active Substance: SOTATERCEPT
     Route: 058
     Dates: start: 20240515, end: 20240515
  3. SOTATERCEPT [Suspect]
     Active Substance: SOTATERCEPT
  4. SOTATERCEPT [Suspect]
     Active Substance: SOTATERCEPT
  5. REMODULIN [Suspect]
     Active Substance: TREPROSTINIL
     Indication: Pulmonary arterial hypertension
     Route: 042
     Dates: start: 202103
  6. OPSUMIT [Concomitant]
     Active Substance: MACITENTAN

REACTIONS (5)
  - Chest pain [Unknown]
  - Weight increased [Unknown]
  - Injection site pruritus [Recovered/Resolved]
  - Diarrhoea [Recovered/Resolved]
  - Body fat disorder [Unknown]

NARRATIVE: CASE EVENT DATE: 20240101
